FAERS Safety Report 23611655 (Version 1)
Quarter: 2024Q1

REPORT INFORMATION
  Report Type: Spontaneous
  Country: AU (occurrence: AU)
  Receive Date: 20240308
  Receipt Date: 20240308
  Transmission Date: 20240410
  Serious: Yes (Hospitalization, Other)
  Sender: FDA-Public Use
  Company Number: AU-AMGEN-AUSSP2024044659

PATIENT
  Age: 71 Year
  Sex: Female

DRUGS (2)
  1. PROLIA [Suspect]
     Active Substance: DENOSUMAB
     Indication: Product used for unknown indication
     Dosage: UNK
     Route: 065
  2. COVID-19 vaccine [Concomitant]
     Dosage: UNK

REACTIONS (6)
  - Pulmonary embolism [Unknown]
  - Thrombosis [Unknown]
  - Inflammation [Unknown]
  - C-reactive protein increased [Unknown]
  - Arthralgia [Unknown]
  - Sinusitis [Unknown]

NARRATIVE: CASE EVENT DATE: 20231201
